FAERS Safety Report 26085854 (Version 2)
Quarter: 2025Q4

REPORT INFORMATION
  Report Type: Report from Study
  Country: US (occurrence: US)
  Receive Date: 20251125
  Receipt Date: 20251217
  Transmission Date: 20260118
  Serious: No
  Sender: SANDOZ
  Company Number: US-SANDOZ-SDZ2025US085550

PATIENT
  Sex: Female

DRUGS (4)
  1. OMNITROPE [Suspect]
     Active Substance: SOMATROPIN
     Indication: Short stature
     Dosage: 2 MG, OTHER, SIX DAYS A WEEK,10 MG/1.5 ML SOLUTION FOR INJECTION IN CARTRIDGE, ONCE DAILY
     Route: 058
  2. OMNITROPE [Suspect]
     Active Substance: SOMATROPIN
     Indication: Short stature
     Dosage: 2 MG, OTHER, SIX DAYS A WEEK,10 MG/1.5 ML SOLUTION FOR INJECTION IN CARTRIDGE, ONCE DAILY
     Route: 058
  3. OMNITROPE [Suspect]
     Active Substance: SOMATROPIN
     Dosage: 2 MG, SIX DAYS A WEEK
     Route: 058
  4. OMNITROPE [Suspect]
     Active Substance: SOMATROPIN
     Dosage: 2 MG, SIX DAYS A WEEK
     Route: 058

REACTIONS (5)
  - Fear [Unknown]
  - Crying [Unknown]
  - Fear of injection [Unknown]
  - Arthralgia [Unknown]
  - Wrong technique in device usage process [Unknown]
